FAERS Safety Report 8163136-8 (Version None)
Quarter: 2012Q1

REPORT INFORMATION
  Report Type: 
  Country: None (occurrence: None)
  Receive Date: 20120221
  Receipt Date: 20120203
  Transmission Date: 20120608
  Serious: Yes (Other)
  Sender: FDA-Public Use
  Company Number: 2012SP002892

PATIENT
  Age: 4 Year
  Sex: Male
  Weight: 16.1 kg

DRUGS (3)
  1. SINGULAIR (MONTELUKAST SODIUM) (MONTELUKAST SODIUM) [Concomitant]
     Indication: ASTHMA PROPHYLAXIS
     Dosage: 4 MG;QD;PO
     Route: 048
     Dates: start: 20100811, end: 20111030
  2. ZADITEN [Suspect]
     Indication: URTICARIA
     Dosage: 0.7 MG;QD;PO
     Route: 048
     Dates: start: 20101127, end: 20110202
  3. CLARITIN [Suspect]
     Indication: URTICARIA
     Dosage: 5 MG;QD;PO
     Route: 048
     Dates: start: 20101125, end: 20110630

REACTIONS (1)
  - PETIT MAL EPILEPSY [None]
